FAERS Safety Report 21600749 (Version 1)
Quarter: 2022Q4

REPORT INFORMATION
  Report Type: Spontaneous
  Country: US (occurrence: US)
  Receive Date: 20221116
  Receipt Date: 20221116
  Transmission Date: 20230113
  Serious: Yes (Other)
  Sender: FDA-Public Use
  Company Number: US-NOVOPROD-979407

PATIENT
  Sex: Female

DRUGS (1)
  1. OZEMPIC [Suspect]
     Active Substance: SEMAGLUTIDE
     Indication: Product used for unknown indication
     Dosage: 0.75 MG
     Route: 058

REACTIONS (4)
  - Autoimmune thyroiditis [Unknown]
  - Thyroid mass [Unknown]
  - Diarrhoea [Unknown]
  - Off label use [Unknown]
